FAERS Safety Report 16745085 (Version 2)
Quarter: 2019Q3

REPORT INFORMATION
  Report Type: Spontaneous
  Country: GR (occurrence: GR)
  Receive Date: 20190827
  Receipt Date: 20190918
  Transmission Date: 20191005
  Serious: Yes (Hospitalization)
  Sender: FDA-Public Use
  Company Number: GR-GLAXOSMITHKLINE-GR2019155021

PATIENT
  Age: 59 Year
  Sex: Female
  Weight: 55 kg

DRUGS (2)
  1. NICORETTE [Suspect]
     Active Substance: NICOTINE
     Indication: SMOKING CESSATION THERAPY
     Dosage: ONE GUM ONCE A DAY
     Route: 065
     Dates: start: 201905
  2. NICORETTE [Suspect]
     Active Substance: NICOTINE
     Indication: SMOKING CESSATION THERAPY
     Dosage: ONE FILTER ONCE A DAY INITIATED
     Route: 065
     Dates: start: 201905

REACTIONS (8)
  - Glossitis [Recovered/Resolved]
  - Application site pain [Recovered/Resolved]
  - Cough [Recovering/Resolving]
  - Acne [Recovered/Resolved]
  - Nasal discomfort [Recovered/Resolved]
  - Overdose [Unknown]
  - Erythema [Recovered/Resolved]
  - Blister [Recovered/Resolved]

NARRATIVE: CASE EVENT DATE: 201905
